FAERS Safety Report 6384776-2 (Version None)
Quarter: 2009Q4

REPORT INFORMATION
  Report Type: 
  Country: None (occurrence: None)
  Receive Date: 20091001
  Receipt Date: 20090927
  Transmission Date: 20100525
  Serious: Yes (Other)
  Sender: FDA-Public Use
  Company Number: US-AMGEN-US352341

PATIENT
  Sex: Female
  Weight: 65.4 kg

DRUGS (14)
  1. NPLATE [Suspect]
     Indication: IDIOPATHIC THROMBOCYTOPENIC PURPURA
     Route: 058
     Dates: start: 20081201, end: 20090414
  2. CORTICOSTEROIDS [Concomitant]
     Route: 065
     Dates: start: 19800101
  3. IMMUNOGLOBULINS [Concomitant]
     Route: 042
     Dates: start: 19800101
  4. AZATHIOPRINE [Concomitant]
  5. CYCLOPHOSPHAMIDE [Concomitant]
  6. LOPRESSOR [Concomitant]
  7. SYNTHROID [Concomitant]
  8. LASIX [Concomitant]
  9. POTASSIUM CHLORIDE [Concomitant]
  10. MEDROL [Concomitant]
  11. ATENOL [Concomitant]
  12. POLYGAM S/D [Concomitant]
  13. COUMADIN [Concomitant]
  14. PLATELETS [Concomitant]

REACTIONS (2)
  - THERAPEUTIC RESPONSE DECREASED [None]
  - THROMBOCYTOPENIA [None]
